FAERS Safety Report 8695851 (Version 3)
Quarter: 2013Q2

REPORT INFORMATION
  Report Type: Spontaneous
  Country: US (occurrence: US)
  Receive Date: 20120801
  Receipt Date: 20130423
  Transmission Date: 20140414
  Serious: No
  Sender: FDA-Public Use
  Company Number: US-ASTRAZENECA-2010SE11922

PATIENT
  Age: 60 Year
  Sex: Male

DRUGS (6)
  1. SEROQUEL [Suspect]
     Indication: BIPOLAR DISORDER
     Route: 048
  2. SEROQUEL [Suspect]
     Indication: BIPOLAR DISORDER
     Route: 048
  3. SYMBICORT PMDI [Suspect]
     Indication: ASTHMA
     Dosage: UNKNOWN
     Route: 055
  4. SYMBICORT PMDI [Suspect]
     Indication: DYSPNOEA
     Dosage: UNKNOWN
     Route: 055
  5. ALBUTEROL [Suspect]
     Indication: ASTHMA
     Route: 065
  6. ALBUTEROL [Suspect]
     Indication: WHEEZING
     Route: 065

REACTIONS (11)
  - Asthma [Unknown]
  - Seasonal allergy [Unknown]
  - Nasopharyngitis [Unknown]
  - Multiple allergies [Unknown]
  - Laryngitis allergic [Unknown]
  - Wheezing [Unknown]
  - Malaise [Unknown]
  - Somnolence [Unknown]
  - Insomnia [Unknown]
  - Dysphonia [Unknown]
  - Cough [Unknown]
